FAERS Safety Report 21104749 (Version 1)
Quarter: 2022Q3

REPORT INFORMATION
  Report Type: Spontaneous
  Country: DE (occurrence: DE)
  Receive Date: 20220720
  Receipt Date: 20220720
  Transmission Date: 20221026
  Serious: Yes (Hospitalization, Other)
  Sender: FDA-Public Use
  Company Number: DE-UCBSA-2022038124

PATIENT
  Sex: Female

DRUGS (5)
  1. NEUPRO [Suspect]
     Active Substance: ROTIGOTINE
     Indication: Product used for unknown indication
     Dosage: 8 MILLIGRAM
     Dates: start: 20220614, end: 202206
  2. NEUPRO [Suspect]
     Active Substance: ROTIGOTINE
     Dosage: 8MG 2 PATCHES
     Route: 062
     Dates: start: 202206, end: 202206
  3. NEUPRO [Suspect]
     Active Substance: ROTIGOTINE
     Dosage: 4MG PATCHES, UNK
     Route: 062
     Dates: start: 202206, end: 20220625
  4. NEUPRO [Suspect]
     Active Substance: ROTIGOTINE
     Dosage: PATCH REMAINS UNNOTICED LONGER THAN 24HOURS
     Dates: start: 202206
  5. CARBIDOPA\LEVODOPA [Concomitant]
     Active Substance: CARBIDOPA\LEVODOPA
     Indication: Parkinson^s disease

REACTIONS (5)
  - Hallucination [Recovered/Resolved]
  - Surgery [Unknown]
  - Postoperative delirium [Recovering/Resolving]
  - Incorrect dosage administered [Unknown]
  - Product use issue [Unknown]

NARRATIVE: CASE EVENT DATE: 20220601
